FAERS Safety Report 7029626-6 (Version None)
Quarter: 2010Q4

REPORT INFORMATION
  Report Type: 
  Country: None (occurrence: None)
  Receive Date: 20101005
  Receipt Date: 20100923
  Transmission Date: 20110411
  Serious: Yes (Disabling)
  Sender: FDA-Public Use
  Company Number: CA-MERCK-1009USA04942

PATIENT
  Age: 72 Year
  Sex: Female
  Weight: 105 kg

DRUGS (12)
  1. ZOCOR [Suspect]
     Route: 048
  2. ZOCOR [Suspect]
     Route: 048
  3. APO-DILTIAZ [Concomitant]
     Route: 065
  4. CELEBREX [Concomitant]
     Route: 065
  5. DOMPERIDONE [Concomitant]
     Route: 065
  6. FLOVENT [Concomitant]
     Route: 065
  7. LASIX [Concomitant]
     Route: 065
  8. NITROGLYCERIN [Concomitant]
     Route: 065
  9. OMEPRAZOLE [Concomitant]
     Route: 065
  10. RIVASA [Concomitant]
     Route: 065
  11. SYNTHROID [Concomitant]
     Route: 065
  12. VENTOLIN [Concomitant]
     Route: 065

REACTIONS (6)
  - ACTIVITIES OF DAILY LIVING IMPAIRED [None]
  - GAIT DISTURBANCE [None]
  - NECK PAIN [None]
  - PAIN [None]
  - PAIN IN EXTREMITY [None]
  - PAIN IN JAW [None]
